FAERS Safety Report 24678956 (Version 1)
Quarter: 2024Q4

REPORT INFORMATION
  Report Type: Spontaneous
  Country: FR (occurrence: FR)
  Receive Date: 20241129
  Receipt Date: 20241129
  Transmission Date: 20250115
  Serious: Yes (Other)
  Sender: AUROBINDO
  Company Number: FR-AFSSAPS-NT2024001241

PATIENT
  Age: 64 Year
  Sex: Female
  Weight: 61 kg

DRUGS (9)
  1. PREDNISONE [Suspect]
     Active Substance: PREDNISONE
     Indication: Immune thrombocytopenia
     Dosage: 60 MILLIGRAM, ONCE A DAY
     Route: 048
     Dates: start: 20240713, end: 20240905
  2. PREDNISONE [Suspect]
     Active Substance: PREDNISONE
     Dosage: 10 MILLIGRAM, ONCE A DAY
     Route: 048
     Dates: start: 20240905
  3. OMEPRAZOLE [Suspect]
     Active Substance: OMEPRAZOLE
     Indication: Product used for unknown indication
     Dosage: 10 MILLIGRAM, ONCE A DAY [10 MILLIGRAM, QD]
     Route: 065
  4. PREVNAR 20 [Suspect]
     Active Substance: PNEUMOCOCCAL 20-VALENT CONJUGATE VACCINE
     Indication: Immunisation
     Dosage: 1 DOSAGE FORM
     Route: 030
     Dates: start: 20240713
  5. DAPAGLIFLOZIN [Concomitant]
     Active Substance: DAPAGLIFLOZIN
     Indication: Diabetes mellitus
     Dosage: UNK (NR)
     Route: 048
     Dates: start: 20240807
  6. METFORMIN [Concomitant]
     Active Substance: METFORMIN HYDROCHLORIDE
     Indication: Diabetes mellitus
     Dosage: 1700 MILLIGRAM, ONCE A DAY [850 MILLIGRAM, BID, MORNING AND EVENING]
     Route: 065
  7. OZEMPIC [Concomitant]
     Active Substance: SEMAGLUTIDE
     Indication: Diabetes mellitus
     Dosage: 1 MILLIGRAM, EVERY WEEK
     Route: 065
     Dates: start: 20240524
  8. CHOLECALCIFEROL [Concomitant]
     Active Substance: CHOLECALCIFEROL
     Indication: Product used for unknown indication
     Dosage: 50000 INTERNATIONAL UNIT
     Route: 065
  9. DIPROSONE [Concomitant]
     Active Substance: BETAMETHASONE DIPROPIONATE
     Indication: Product used for unknown indication
     Dosage: 1 DOSAGE FORM, ONCE A DAY
     Route: 065

REACTIONS (5)
  - Diabetes mellitus [Unknown]
  - Injection site ulcer [Recovered/Resolved]
  - Vaccination site erythema [Recovered/Resolved]
  - Blister [Recovered/Resolved]
  - Impaired healing [Recovered/Resolved]

NARRATIVE: CASE EVENT DATE: 20240701
